APPROVED DRUG PRODUCT: DOXORUBICIN HYDROCHLORIDE (LIPOSOMAL)
Active Ingredient: DOXORUBICIN HYDROCHLORIDE
Strength: 20MG/10ML (2MG/ML)
Dosage Form/Route: INJECTABLE, LIPOSOMAL;INJECTION
Application: A203263 | Product #001 | TE Code: AB
Applicant: SUN PHARMACEUTICAL INDUSTRIES LTD
Approved: Feb 4, 2013 | RLD: No | RS: Yes | Type: RX